FAERS Safety Report 11157263 (Version 1)
Quarter: 2015Q2

REPORT INFORMATION
  Report Type: Spontaneous
  Country: BR (occurrence: BR)
  Receive Date: 20150602
  Receipt Date: 20150602
  Transmission Date: 20150821
  Serious: Yes (Other)
  Sender: FDA-Public Use
  Company Number: PHHY2015BR063484

PATIENT
  Age: 51 Year
  Sex: Female

DRUGS (1)
  1. FLUOXETINE HYDROCHLORIDE SANDOZ [Suspect]
     Active Substance: FLUOXETINE HYDROCHLORIDE
     Indication: ANXIETY
     Route: 065

REACTIONS (6)
  - Withdrawal syndrome [Unknown]
  - Drug administration error [Unknown]
  - Drug hypersensitivity [Unknown]
  - Extrapyramidal disorder [Unknown]
  - Anaphylactic shock [Unknown]
  - Therapeutic response unexpected [Unknown]
